FAERS Safety Report 6653156-4 (Version None)
Quarter: 2010Q1

REPORT INFORMATION
  Report Type: 
  Country: None (occurrence: None)
  Receive Date: 20100317
  Receipt Date: 20100105
  Transmission Date: 20100710
  Serious: Yes (Other)
  Sender: FDA-Public Use
  Company Number: DSA_42296_2010

PATIENT
  Sex: Male

DRUGS (4)
  1. XENAZINE [Suspect]
     Indication: HUNTINGTON'S CHOREA
     Dosage: 12.5 MG TID ORAL
     Route: 048
     Dates: start: 20091114, end: 20091201
  2. ZOLOFT [Concomitant]
  3. AVODART [Concomitant]
  4. UROXATRAL [Concomitant]

REACTIONS (3)
  - DEPRESSION [None]
  - FALL [None]
  - SUICIDAL IDEATION [None]
